FAERS Safety Report 8966787 (Version 1)
Quarter: 2012Q4

REPORT INFORMATION
  Report Type: 
  Country: US (occurrence: US)
  Receive Date: 20121217
  Receipt Date: 20121217
  Transmission Date: 20130627
  Serious: Yes (Other)
  Sender: FDA-Public Use
  Company Number: US-PFIZER INC-2012318546

PATIENT
  Age: 47 Year
  Sex: Female
  Weight: 44.44 kg

DRUGS (5)
  1. EFFEXOR XR [Suspect]
     Indication: DEPRESSION
     Dosage: 600 mg, 1x/day
     Route: 048
     Dates: start: 2005
  2. EFFEXOR XR [Suspect]
     Indication: ANXIETY
  3. LAMICTAL [Concomitant]
     Dosage: UNK
  4. SEROQUEL [Concomitant]
     Dosage: UNK
  5. TEMAZEPAM [Concomitant]
     Dosage: UNK, as needed

REACTIONS (3)
  - Functional gastrointestinal disorder [Unknown]
  - Blood magnesium decreased [Unknown]
  - Overdose [Unknown]
